FAERS Safety Report 5581425-8 (Version None)
Quarter: 2007Q4

REPORT INFORMATION
  Report Type: 
  Country: None (occurrence: None)
  Receive Date: 20071231
  Receipt Date: 20071231
  Transmission Date: 20080405
  Serious: No
  Sender: FDA-Public Use
  Company Number: None

PATIENT
  Age: 81 Month
  Sex: Male
  Weight: 73.9363 kg

DRUGS (1)
  1. MUCINEX [Suspect]

REACTIONS (2)
  - EAR PAIN [None]
  - HEADACHE [None]
